FAERS Safety Report 17821986 (Version 2)
Quarter: 2020Q2

REPORT INFORMATION
  Report Type: Spontaneous
  Country: DE (occurrence: DE)
  Receive Date: 20200526
  Receipt Date: 20200606
  Transmission Date: 20200714
  Serious: Yes (Other)
  Sender: FDA-Public Use
  Company Number: DE-AUROBINDO-AUR-APL-2020-025661

PATIENT
  Age: 60 Year
  Sex: Male
  Weight: 74 kg

DRUGS (5)
  1. METOPROLOL. [Concomitant]
     Active Substance: METOPROLOL
     Indication: CARDIOVASCULAR DISORDER
     Dosage: UNK
     Route: 065
     Dates: start: 20150218
  2. ORELOX [Concomitant]
     Active Substance: CEFPODOXIME
     Indication: PRODUCT USED FOR UNKNOWN INDICATION
     Dosage: UNK
     Route: 065
     Dates: start: 20150511
  3. OMBITASVIR;PARITAPREVIR;RITONAVIR [Suspect]
     Active Substance: OMBITASVIR\PARITAPREVIR\RITONAVIR
     Indication: CHRONIC HEPATITIS C
     Dosage: 75 MILLIGRAM (PACK WITH 56 COATED TABLETS)
     Route: 048
     Dates: start: 20150128
  4. ACC [Concomitant]
     Active Substance: ACETYLCYSTEINE
     Indication: PRODUCT USED FOR UNKNOWN INDICATION
     Dosage: 600 MILLIGRAM
     Route: 065
     Dates: start: 20150427
  5. RIBAVIRIN. [Suspect]
     Active Substance: RIBAVIRIN
     Indication: CHRONIC HEPATITIS C
     Dosage: 800 MILLIGRAM, ONCE A DAY
     Route: 048
     Dates: start: 20150218

REACTIONS (5)
  - Pneumonia [Unknown]
  - Jaundice [Unknown]
  - Headache [Recovering/Resolving]
  - Pruritus [Unknown]
  - Ocular icterus [Unknown]

NARRATIVE: CASE EVENT DATE: 20150218
